FAERS Safety Report 10379168 (Version 2)
Quarter: 2014Q3

REPORT INFORMATION
  Report Type: Spontaneous
  Country: KE (occurrence: KE)
  Receive Date: 20140812
  Receipt Date: 20140925
  Transmission Date: 20150326
  Serious: Yes (Hospitalization)
  Sender: FDA-Public Use
  Company Number: KE-GLAXOSMITHKLINE-B1017809A

PATIENT
  Age: 59 Year
  Sex: Female

DRUGS (2)
  1. EFAMOL [Concomitant]
     Indication: PHARYNGITIS
     Dosage: 1G PER DAY
     Route: 048
  2. ZINNAT [Suspect]
     Active Substance: CEFUROXIME AXETIL
     Indication: PHARYNGITIS
     Dosage: 1G PER DAY
     Route: 065

REACTIONS (6)
  - Headache [Unknown]
  - C-reactive protein increased [Unknown]
  - Neutrophilia [Unknown]
  - Pain [Unknown]
  - Vomiting [Unknown]
  - Pyrexia [Unknown]
